FAERS Safety Report 25731465 (Version 1)
Quarter: 2025Q3

REPORT INFORMATION
  Report Type: Spontaneous
  Country: US (occurrence: US)
  Receive Date: 20250827
  Receipt Date: 20250827
  Transmission Date: 20251021
  Serious: No
  Sender: DR REDDYS
  Company Number: US-DRL-USA-USA/2025/07/009748

PATIENT
  Age: 40 Year
  Sex: Female
  Weight: 43.09 kg

DRUGS (2)
  1. TAMOXIFEN CITRATE [Suspect]
     Active Substance: TAMOXIFEN CITRATE
     Indication: Breast cancer
     Route: 065
  2. TAMOXIFEN CITRATE [Suspect]
     Active Substance: TAMOXIFEN CITRATE
     Dosage: SERIAL NUMBER: CKGYEA6DF1FV
     Route: 065
     Dates: start: 20250606

REACTIONS (3)
  - Ear pain [Not Recovered/Not Resolved]
  - Poor quality product administered [Unknown]
  - Product physical issue [Unknown]
